FAERS Safety Report 5065112-0 (Version None)
Quarter: 2006Q3

REPORT INFORMATION
  Report Type: 
  Country: None (occurrence: None)
  Receive Date: 20060727
  Receipt Date: 20060727
  Transmission Date: 20061208
  Serious: Yes (Hospitalization)
  Sender: FDA-Public Use
  Company Number: None

PATIENT
  Age: 66 Year
  Sex: Female
  Weight: 73.1 kg

DRUGS (9)
  1. ALIMTA [Suspect]
     Indication: BLADDER CANCER
     Dosage: 540MG Q2WEEKS IV
     Route: 042
  2. TAXOTERE [Suspect]
     Dosage: 45MG Q2WEEKS IV
     Route: 042
  3. COUMADIN [Concomitant]
  4. DEXAMETHASONE TAB [Concomitant]
  5. SYNTHROID [Concomitant]
  6. ZANTAC [Concomitant]
  7. CLARITIN [Concomitant]
  8. FOLIC ACID [Concomitant]
  9. VITAMIN B-12 [Concomitant]

REACTIONS (8)
  - ABDOMINAL DISTENSION [None]
  - DIARRHOEA [None]
  - FATIGUE [None]
  - FLATULENCE [None]
  - GASTROINTESTINAL PERFORATION [None]
  - METASTATIC NEOPLASM [None]
  - MUSCULOSKELETAL PAIN [None]
  - PYREXIA [None]
